FAERS Safety Report 21937412 (Version 2)
Quarter: 2023Q1

REPORT INFORMATION
  Report Type: Spontaneous
  Country: US (occurrence: US)
  Receive Date: 20230201
  Receipt Date: 20230216
  Transmission Date: 20230417
  Serious: No
  Sender: FDA-Public Use
  Company Number: US-IDORSIA-003098-2023-US

PATIENT
  Age: 72 Year
  Sex: Male

DRUGS (1)
  1. QUVIVIQ [Suspect]
     Active Substance: DARIDOREXANT
     Indication: Insomnia
     Dosage: 50 MG, QD
     Route: 048
     Dates: start: 202301, end: 202301

REACTIONS (3)
  - Pruritus [Recovered/Resolved]
  - Skin haemorrhage [Recovered/Resolved]
  - Scratch [Recovered/Resolved]

NARRATIVE: CASE EVENT DATE: 20230101
